FAERS Safety Report 4642626-6 (Version None)
Quarter: 2005Q2

REPORT INFORMATION
  Report Type: 
  Country: None (occurrence: None)
  Receive Date: 20050420
  Receipt Date: 20050414
  Transmission Date: 20051028
  Serious: Yes (Disabling)
  Sender: FDA-Public Use
  Company Number: 200510159BCA

PATIENT
  Age: 52 Year
  Sex: Female

DRUGS (6)
  1. AVELOX [Suspect]
     Indication: BRONCHIECTASIS
     Dosage: 400 MG, TOTAL DAILY, ORAL
     Route: 048
     Dates: start: 20050308, end: 20050318
  2. NASONEX [Concomitant]
  3. SYNTHROID [Concomitant]
  4. SPIRIVA [Concomitant]
  5. VENTOLIN DISKUS [Concomitant]
  6. ADVAIR DISKUS 100/50 [Concomitant]

REACTIONS (3)
  - DEAFNESS [None]
  - FEELING ABNORMAL [None]
  - SOMNOLENCE [None]
